FAERS Safety Report 14139470 (Version 1)
Quarter: 2017Q4

REPORT INFORMATION
  Report Type: Spontaneous
  Country: FR (occurrence: FR)
  Receive Date: 20171028
  Receipt Date: 20171028
  Transmission Date: 20180321
  Serious: Yes (Other)
  Sender: FDA-Public Use
  Company Number: FR-MERCK KGAA-2032668

PATIENT
  Sex: Male

DRUGS (2)
  1. NOVOTHYROX [Suspect]
     Active Substance: LEVOTHYROXINE SODIUM
     Indication: THYROID DISORDER
  2. NEOMERCAZOLE(CARBIMAZOLE) [Concomitant]

REACTIONS (5)
  - Fatigue [Unknown]
  - Weight decreased [Unknown]
  - Hypothyroidism [Recovering/Resolving]
  - Hyperthyroidism [Recovering/Resolving]
  - Nervousness [Unknown]
